FAERS Safety Report 9196875 (Version 12)
Quarter: 2014Q2

REPORT INFORMATION
  Report Type: Spontaneous
  Country: GB (occurrence: GB)
  Receive Date: 20130328
  Receipt Date: 20140429
  Transmission Date: 20141212
  Serious: Yes (Hospitalization, Other)
  Sender: FDA-Public Use
  Company Number: PHFR2013GB001182

PATIENT
  Age: 70 Year
  Sex: Male
  Weight: 53 kg

DRUGS (14)
  1. CLOZARIL [Suspect]
     Indication: SCHIZOPHRENIA
     Dosage: 400 MG, (100 MG MANE AND 300 MG NOCTE)UNK
     Route: 048
     Dates: start: 20020322
  2. CLOZARIL [Suspect]
     Dosage: 300 MG/ 24 HOURS
     Route: 048
  3. CLOZARIL [Suspect]
     Dosage: GRADUALLY TAPERED DOWN
     Route: 048
     Dates: end: 20140411
  4. SODIUM VALPROATE [Concomitant]
     Indication: AFFECTIVE DISORDER
     Dosage: 100 MG, UNK (NOCTE)
     Route: 048
     Dates: start: 200901
  5. FLUOXETINE [Concomitant]
     Indication: DEPRESSION
     Dosage: 20 MG, QD
     Route: 048
     Dates: start: 200608
  6. ADCAL [Concomitant]
     Indication: BONE LOSS
     Dosage: UNK UKN, BID
     Route: 048
     Dates: start: 200907
  7. LACTULOSE [Concomitant]
     Dosage: UNK UKN, UNK
  8. PROCAL [Concomitant]
     Indication: INCREASED APPETITE
     Dosage: UNK UKN, UNK(AS DIRECRED)
     Route: 048
     Dates: start: 201010
  9. SINVASTATINA [Concomitant]
     Indication: LIPIDS INCREASED
     Dosage: 40 MG, UNK
     Route: 048
     Dates: start: 201302
  10. FERROUS SULPHATE [Concomitant]
     Indication: ANAEMIA
     Dosage: 200 MG, TID
     Route: 048
     Dates: start: 201303
  11. LAXATIVE [Concomitant]
     Indication: CONSTIPATION
     Dosage: UNK UKN, BID
     Route: 048
     Dates: start: 201304
  12. HYDROXYCARBAMIDE [Concomitant]
     Dosage: UNK
  13. CYCLIZINE [Concomitant]
     Dosage: UNK
  14. PARACETAMOL [Concomitant]
     Dosage: UNK

REACTIONS (17)
  - Bladder transitional cell carcinoma stage III [Not Recovered/Not Resolved]
  - Haematuria [Unknown]
  - Metastases to liver [Unknown]
  - Metastases to lung [Unknown]
  - Vesical fistula [Unknown]
  - Urinary retention postoperative [Recovered/Resolved]
  - Metastatic carcinoma of the bladder [Unknown]
  - Renal failure chronic [Unknown]
  - General physical health deterioration [Unknown]
  - Haemorrhage urinary tract [Unknown]
  - Anaemia of chronic disease [Unknown]
  - Haemoglobin decreased [Not Recovered/Not Resolved]
  - Antipsychotic drug level increased [Unknown]
  - White blood cell count increased [Unknown]
  - Neutrophil count increased [Unknown]
  - Alanine aminotransferase increased [Unknown]
  - Constipation [Recovered/Resolved]
